FAERS Safety Report 20738874 (Version 1)
Quarter: 2022Q2

REPORT INFORMATION
  Report Type: Spontaneous
  Country: US (occurrence: None)
  Receive Date: 20220422
  Receipt Date: 20220422
  Transmission Date: 20220721
  Serious: No
  Sender: FDA-Public Use
  Company Number: None

PATIENT
  Sex: Female

DRUGS (8)
  1. OTEZLA [Suspect]
     Active Substance: APREMILAST
     Indication: Psoriasis
     Dosage: OTHER FREQUENCY :  AM DAY 1;?
     Route: 048
  2. OTEZLA [Suspect]
     Active Substance: APREMILAST
     Dosage: OTHER FREQUENCY : AM + PM DAY 2;?
     Route: 048
  3. OTEZLA [Suspect]
     Active Substance: APREMILAST
     Dosage: OTHER FREQUENCY : AM DAY 3;?
     Route: 048
  4. OTEZLA [Suspect]
     Active Substance: APREMILAST
     Dosage: OTHER FREQUENCY : PM DAY 3;?
     Route: 048
  5. OTEZLA [Suspect]
     Active Substance: APREMILAST
     Dosage: OTHER FREQUENCY : AM + PM DAY 4;?
     Route: 048
  6. OTEZLA [Suspect]
     Active Substance: APREMILAST
     Dosage: OTHER FREQUENCY : AM DAY 5;?
     Route: 048
  7. OTEZLA [Suspect]
     Active Substance: APREMILAST
     Dosage: OTHER FREQUENCY : PM DAY 5;?
     Route: 048
  8. OTEZLA [Suspect]
     Active Substance: APREMILAST
     Dosage: FREQUENCY : TWICE A DAY;?
     Route: 048

REACTIONS (1)
  - Drug ineffective [None]
